FAERS Safety Report 6106208-1 (Version None)
Quarter: 2009Q1

REPORT INFORMATION
  Report Type: 
  Country: None (occurrence: None)
  Receive Date: 20090306
  Receipt Date: 20090226
  Transmission Date: 20090719
  Serious: Yes (Hospitalization)
  Sender: FDA-Public Use
  Company Number: FR-ELI_LILLY_AND_COMPANY-FR200903000259

PATIENT
  Age: 64 Year
  Sex: Female

DRUGS (5)
  1. BYETTA [Suspect]
     Indication: DIABETES MELLITUS
     Dates: end: 20090101
  2. METFORMIN [Concomitant]
  3. AMLOR [Concomitant]
  4. DIAMICRON [Concomitant]
  5. LOTENSIN HCT [Concomitant]

REACTIONS (3)
  - GASTROENTERITIS [None]
  - LACTIC ACIDOSIS [None]
  - WEIGHT DECREASED [None]
